FAERS Safety Report 8572905-1 (Version None)
Quarter: 2012Q3

REPORT INFORMATION
  Report Type: 
  Country: None (occurrence: None)
  Receive Date: 20120806
  Receipt Date: 20091125
  Transmission Date: 20120928
  Serious: Yes (Hospitalization, Other)
  Sender: FDA-Public Use
  Company Number: DE-CELGENEUS-062-21880-12060414

PATIENT
  Age: 65 Year
  Sex: Male
  Weight: 72 kg

DRUGS (5)
  1. GLOBULIN [Concomitant]
     Route: 065
  2. GLOBULIN [Concomitant]
     Route: 065
  3. REVLIMID [Suspect]
     Indication: MULTIPLE MYELOMA
     Dosage: 10 MILLIGRAM
     Route: 048
     Dates: start: 20090209, end: 20090416
  4. BISPHOSPHONATES [Concomitant]
     Route: 065
  5. RED BLOOD CELLS [Concomitant]
     Dosage: 10 CONCENTRATES
     Route: 065

REACTIONS (8)
  - EYE HAEMORRHAGE [None]
  - PAIN [None]
  - ANAEMIA [None]
  - PNEUMONIA [None]
  - HEADACHE [None]
  - RHINITIS [None]
  - LEUKOPENIA [None]
  - THROMBOCYTOPENIA [None]
